FAERS Safety Report 6722334-8 (Version None)
Quarter: 2010Q2

REPORT INFORMATION
  Report Type: 
  Country: None (occurrence: None)
  Receive Date: 20100512
  Receipt Date: 20100505
  Transmission Date: 20101027
  Serious: Yes (Other)
  Sender: FDA-Public Use
  Company Number: GXKR2010TR05057

PATIENT
  Age: 30 Year
  Sex: Male

DRUGS (4)
  1. CYCLOSPORINE [Suspect]
     Indication: STILL'S DISEASE ADULT ONSET
     Dosage: 3 MG/KG/DAY
     Route: 065
  2. METHOTREXATE [Concomitant]
     Indication: STILL'S DISEASE ADULT ONSET
     Dosage: 10 MG PER WEEK
     Route: 065
  3. CORTICOSTEROIDS [Concomitant]
     Indication: STILL'S DISEASE ADULT ONSET
     Dosage: 1 MG/KG, UNK
     Route: 065
  4. NSAID'S [Concomitant]
     Indication: STILL'S DISEASE ADULT ONSET
     Route: 065

REACTIONS (5)
  - DYSPNOEA [None]
  - FIBROSIS [None]
  - GOITRE [None]
  - LOCALISED OEDEMA [None]
  - NECK MASS [None]
